FAERS Safety Report 7714764-2 (Version None)
Quarter: 2011Q3

REPORT INFORMATION
  Report Type: 
  Country: None (occurrence: None)
  Receive Date: 20110822
  Receipt Date: 20110804
  Transmission Date: 20111222
  Serious: Yes (Hospitalization)
  Sender: FDA-Public Use
  Company Number: 2011MA011376

PATIENT
  Age: 45 Year
  Sex: Female

DRUGS (2)
  1. OXYCODONE AND ACETAMINOPHEN [Suspect]
     Indication: PAIN
     Dosage: 330 MG;QID
     Dates: start: 20010101, end: 20030101
  2. FENTANYL [Suspect]
     Indication: PAIN
     Dosage: 175 MCG/HR;Q48HR
     Dates: start: 20010101, end: 20030101

REACTIONS (1)
  - ADRENAL INSUFFICIENCY [None]
